FAERS Safety Report 18876947 (Version 7)
Quarter: 2022Q1

REPORT INFORMATION
  Report Type: Report from Study
  Country: US (occurrence: US)
  Receive Date: 20210211
  Receipt Date: 20220105
  Transmission Date: 20220423
  Serious: Yes (Other)
  Sender: FDA-Public Use
  Company Number: NVSC2021US022178

PATIENT
  Age: 69 Year
  Sex: Female

DRUGS (5)
  1. ENTRESTO [Suspect]
     Active Substance: SACUBITRIL\VALSARTAN
     Indication: Product used for unknown indication
     Dosage: 50 MG, BID (49/51 MG)
     Route: 048
     Dates: start: 202010
  2. ENTRESTO [Suspect]
     Active Substance: SACUBITRIL\VALSARTAN
     Dosage: 50 MG, BID (24/26 MG)
     Route: 048
     Dates: start: 202012
  3. ENTRESTO [Suspect]
     Active Substance: SACUBITRIL\VALSARTAN
     Dosage: 100 MG, BID (49/51 MG)
     Route: 048
  4. MELOXICAM [Suspect]
     Active Substance: MELOXICAM
     Indication: Product used for unknown indication
     Dosage: UNK
     Route: 065
  5. CORTISONE [Concomitant]
     Active Substance: CORTISONE
     Indication: Arthropathy
     Dosage: UNK
     Route: 065

REACTIONS (17)
  - Cardiac failure [Unknown]
  - Pericardial effusion [Unknown]
  - Oxygen saturation decreased [Unknown]
  - Pollakiuria [Recovered/Resolved]
  - Weight loss poor [Unknown]
  - COVID-19 [Unknown]
  - Cough [Recovering/Resolving]
  - Fatigue [Recovered/Resolved]
  - Dyspepsia [Unknown]
  - Weight decreased [Unknown]
  - Weight increased [Unknown]
  - Feeling abnormal [Recovered/Resolved]
  - Blood pressure decreased [Unknown]
  - Dizziness [Unknown]
  - Fall [Unknown]
  - Arthralgia [Not Recovered/Not Resolved]
  - Product dose omission issue [Unknown]

NARRATIVE: CASE EVENT DATE: 20201001
